FAERS Safety Report 4304783-0 (Version None)
Quarter: 2004Q1

REPORT INFORMATION
  Report Type: 
  Country: None (occurrence: None)
  Receive Date: 20040226
  Receipt Date: 20031209
  Transmission Date: 20041129
  Serious: No
  Sender: FDA-Public Use
  Company Number: US-GLAXOSMITHKLINE-A0442521A

PATIENT
  Sex: Male

DRUGS (2)
  1. WELLBUTRIN [Suspect]
     Dosage: 450MG PER DAY
     Route: 048
  2. CHEMOTHERAPY [Concomitant]

REACTIONS (2)
  - DYSGEUSIA [None]
  - PAROSMIA [None]
